FAERS Safety Report 7211146-7 (Version None)
Quarter: 2010Q4

REPORT INFORMATION
  Report Type: 
  Country: None (occurrence: None)
  Receive Date: 20101223
  Receipt Date: 20101215
  Transmission Date: 20110411
  Serious: Yes (Death)
  Sender: FDA-Public Use
  Company Number: DKLU1065926

PATIENT
  Age: 3 Year
  Sex: Male

DRUGS (7)
  1. SABRIL [Suspect]
     Indication: PARTIAL SEIZURES
     Dosage: 250 MG MILLIGRAM(S), 2 IN 1 D, ORAL
     Route: 048
     Dates: start: 20100728
  2. ATIVAN (LORAZEPAM) (2 MG/ML) [Concomitant]
  3. TOPAMAX (TOPIRAMATE) (6 MG/ML) [Concomitant]
  4. CLONAZEPAM (CLONAZEPAM) (0.2 MG/ML) [Concomitant]
  5. LYRICA (PREGABALIN) (75 MG, CAPSULE) [Concomitant]
  6. DIAZEPAM (DIAZEPAM) (5 MG/ML) [Concomitant]
  7. DEPAKENE (VALPROIC ACID) (SYRUP) [Concomitant]

REACTIONS (5)
  - CONVULSION [None]
  - LETHARGY [None]
  - MEDICAL DEVICE COMPLICATION [None]
  - NYSTAGMUS [None]
  - TORTICOLLIS [None]
